FAERS Safety Report 5331498-2 (Version None)
Quarter: 2007Q2

REPORT INFORMATION
  Report Type: 
  Country: None (occurrence: None)
  Receive Date: 20070522
  Receipt Date: 20070511
  Transmission Date: 20071010
  Serious: Yes (Hospitalization)
  Sender: FDA-Public Use
  Company Number: US-PFIZER INC-2006043615

PATIENT
  Sex: Male
  Weight: 81.6 kg

DRUGS (17)
  1. SUTENT [Suspect]
     Indication: RENAL CELL CARCINOMA STAGE UNSPECIFIED
     Route: 048
     Dates: start: 20051220, end: 20060116
  2. SUTENT [Suspect]
     Route: 048
     Dates: start: 20060131, end: 20060227
  3. SUTENT [Suspect]
     Route: 048
  4. ACETAMINOPHEN [Concomitant]
     Indication: OSTEOARTHRITIS
     Route: 048
  5. WARFARIN SODIUM [Concomitant]
     Indication: HEART VALVE REPLACEMENT
     Route: 048
  6. HYDROCHLOROTHIAZIDE [Concomitant]
     Indication: OEDEMA
     Route: 048
     Dates: start: 20031201, end: 20060314
  7. ATENOLOL [Concomitant]
     Indication: HEART VALVE REPLACEMENT
     Route: 048
  8. PIROXICAM [Concomitant]
     Indication: OSTEOARTHRITIS
     Route: 048
  9. TOLTERODINE [Concomitant]
     Indication: HYPERTONIC BLADDER
     Route: 048
  10. TAMSULOSIN HCL [Concomitant]
     Indication: HYPERTONIC BLADDER
     Route: 048
  11. CENTRUM SILVER [Concomitant]
     Indication: VITAMIN SUPPLEMENTATION
     Route: 048
  12. MAALOX FAST BLOCKER [Concomitant]
     Indication: DYSPEPSIA
     Route: 048
  13. HYDROCODONE BITARTRATE [Concomitant]
     Indication: PAIN
     Route: 048
  14. ENOXAPARIN SODIUM [Concomitant]
     Indication: THROMBOSIS PROPHYLAXIS
     Route: 048
  15. LEUPROLIDE ACETATE [Concomitant]
     Indication: PROSTATE CANCER
     Route: 030
  16. BICALUTAMIDE [Concomitant]
     Indication: PROSTATE CANCER
     Route: 048
  17. FUROSEMIDE [Concomitant]
     Indication: OEDEMA
     Route: 048

REACTIONS (1)
  - INTESTINAL OBSTRUCTION [None]
